FAERS Safety Report 6057617-0 (Version None)
Quarter: 2009Q1

REPORT INFORMATION
  Report Type: 
  Country: None (occurrence: None)
  Receive Date: 20090129
  Receipt Date: 20080331
  Transmission Date: 20090719
  Serious: No
  Sender: FDA-Public Use
  Company Number: US-BAUSCH-2008BL001435

PATIENT
  Age: 60 Year
  Sex: Male
  Weight: 113 kg

DRUGS (12)
  1. DESMOPRESSIN ACETATE [Suspect]
     Indication: DIABETES INSIPIDUS
     Route: 045
     Dates: start: 20071001, end: 20080101
  2. DESMOPRESSIN ACETATE [Suspect]
     Route: 045
     Dates: start: 20080101, end: 20080301
  3. DESMOPRESSIN ACETATE [Suspect]
     Route: 045
     Dates: start: 20080301, end: 20080301
  4. THERALITH [Concomitant]
     Indication: HYPERTONIC BLADDER
     Route: 048
  5. IMIPRAMINE [Concomitant]
     Indication: HYPERTONIC BLADDER
     Route: 048
  6. FLOVENT [Concomitant]
     Indication: SINUS DISORDER
     Route: 045
  7. BACTRIM DS [Concomitant]
     Indication: SELECTIVE IGA IMMUNODEFICIENCY
     Route: 048
  8. REFRESH [Concomitant]
     Indication: KERATOCONJUNCTIVITIS SICCA
     Route: 047
  9. INSULIN [Concomitant]
     Indication: DIABETES MELLITUS
     Route: 058
  10. AFRIN [Concomitant]
     Indication: SINUS CONGESTION
     Route: 045
  11. ASPIRIN [Concomitant]
     Route: 048
  12. MELATONIN [Concomitant]
     Indication: INSOMNIA
     Route: 048

REACTIONS (3)
  - BLOOD PRESSURE INCREASED [None]
  - DRUG EFFECT DECREASED [None]
  - RHINORRHOEA [None]
